FAERS Safety Report 4784722-9 (Version None)
Quarter: 2005Q3

REPORT INFORMATION
  Report Type: 
  Country: None (occurrence: None)
  Receive Date: 20050929
  Receipt Date: 20050929
  Transmission Date: 20060218
  Serious: Yes (Death, Hospitalization)
  Sender: FDA-Public Use
  Company Number: None

PATIENT
  Sex: Male
  Weight: 85.7298 kg

DRUGS (19)
  1. JANTOVEN [Suspect]
     Indication: ATRIAL FIBRILLATION
  2. JANTOVEN [Suspect]
  3. ZANTAC [Concomitant]
  4. LEXAPRO [Concomitant]
  5. PREDNISONE [Concomitant]
  6. COLACE [Concomitant]
  7. LASIX [Concomitant]
  8. MULTI-VITAMIN [Concomitant]
  9. K-DUR 10 [Concomitant]
  10. TENORMIN [Concomitant]
  11. ULTRAM [Concomitant]
  12. ATROVENT [Concomitant]
  13. DULCOLAX [Concomitant]
  14. MILK OF MAG [Concomitant]
  15. PHENERGAN [Concomitant]
  16. ROCEPHIN [Concomitant]
  17. HEPARIN [Concomitant]
  18. KEFLEX [Concomitant]
  19. LIDOCAINE [Concomitant]

REACTIONS (4)
  - ILEUS [None]
  - INTERNATIONAL NORMALISED RATIO FLUCTUATION [None]
  - PHARMACEUTICAL PRODUCT COMPLAINT [None]
  - PROTHROMBIN TIME PROLONGED [None]
